FAERS Safety Report 21441139 (Version 1)
Quarter: 2022Q4

REPORT INFORMATION
  Report Type: Spontaneous
  Country: PL (occurrence: PL)
  Receive Date: 20221011
  Receipt Date: 20221011
  Transmission Date: 20230113
  Serious: Yes (Other)
  Sender: FDA-Public Use
  Company Number: PL-TAKEDA-2022TUS072478

PATIENT

DRUGS (2)
  1. ANAGRELIDE [Suspect]
     Active Substance: ANAGRELIDE
     Indication: Essential thrombocythaemia
     Dosage: 0.5 MILLIGRAM, BID
     Route: 065
  2. ANAGRELIDE [Suspect]
     Active Substance: ANAGRELIDE
     Dosage: 2.5 MILLIGRAM, QD
     Route: 065

REACTIONS (1)
  - Myelofibrosis [Unknown]
